FAERS Safety Report 20080333 (Version 1)
Quarter: 2021Q4

REPORT INFORMATION
  Report Type: Spontaneous
  Country: US (occurrence: None)
  Receive Date: 20211116
  Receipt Date: 20211116
  Transmission Date: 20220303
  Serious: No
  Sender: FDA-Public Use
  Company Number: None

PATIENT
  Age: 64 Year
  Sex: Male
  Weight: 112.5 kg

DRUGS (5)
  1. BUPROPION XL [Suspect]
     Active Substance: BUPROPION HYDROCHLORIDE
     Indication: Depression
     Dosage: OTHER QUANTITY : 2 TABLET(S);?
     Route: 048
     Dates: start: 20210928
  2. OMEPRAZOLE [Concomitant]
     Active Substance: OMEPRAZOLE
  3. DEVICE [Concomitant]
     Active Substance: DEVICE
  4. IBUPROFEN [Concomitant]
     Active Substance: IBUPROFEN
  5. VITAMINS [Concomitant]
     Active Substance: VITAMINS

REACTIONS (4)
  - Anxiety [None]
  - Abdominal pain upper [None]
  - Taste disorder [None]
  - Thinking abnormal [None]

NARRATIVE: CASE EVENT DATE: 20211101
